FAERS Safety Report 7105870-4 (Version None)
Quarter: 2010Q4

REPORT INFORMATION
  Report Type: 
  Country: None (occurrence: None)
  Receive Date: 20101116
  Receipt Date: 20101108
  Transmission Date: 20110411
  Serious: Yes (Congenital Anomaly)
  Sender: FDA-Public Use
  Company Number: A0871552A

PATIENT
  Sex: Female

DRUGS (1)
  1. PAXIL [Suspect]

REACTIONS (5)
  - CARDIAC MURMUR [None]
  - CARDIAC SEPTAL DEFECT [None]
  - DRUG EXPOSURE DURING PREGNANCY [None]
  - HEART DISEASE CONGENITAL [None]
  - PULMONARY ARTERY STENOSIS CONGENITAL [None]
